FAERS Safety Report 12211253 (Version 2)
Quarter: 2016Q2

REPORT INFORMATION
  Report Type: Spontaneous
  Country: BR (occurrence: BR)
  Receive Date: 20160325
  Receipt Date: 20160527
  Transmission Date: 20160815
  Serious: Yes (Other)
  Sender: FDA-Public Use
  Company Number: BR-PFIZER INC-2016174556

PATIENT
  Age: 44 Year
  Sex: Female
  Weight: 75 kg

DRUGS (2)
  1. EFFEXOR XR [Suspect]
     Active Substance: VENLAFAXINE HYDROCHLORIDE
     Indication: ANTIDEPRESSANT THERAPY
     Dosage: 75 MG, DAILY
     Route: 048
     Dates: start: 201602, end: 201603
  2. EFFEXOR XR [Suspect]
     Active Substance: VENLAFAXINE HYDROCHLORIDE
     Indication: ANXIOLYTIC THERAPY

REACTIONS (11)
  - Dizziness [Recovered/Resolved]
  - Feeling abnormal [Recovered/Resolved]
  - Dyspnoea [Recovered/Resolved]
  - Nausea [Recovered/Resolved]
  - Impaired driving ability [Recovered/Resolved]
  - Asthenia [Recovered/Resolved]
  - Cardiac disorder [Recovered/Resolved]
  - Tremor [Recovered/Resolved]
  - Vomiting [Recovered/Resolved]
  - Somnolence [Recovered/Resolved]
  - Drug intolerance [Recovered/Resolved]

NARRATIVE: CASE EVENT DATE: 2016
